FAERS Safety Report 11634467 (Version 2)
Quarter: 2015Q4

REPORT INFORMATION
  Report Type: Report from Study
  Country: CA (occurrence: CA)
  Receive Date: 20151015
  Receipt Date: 20151207
  Transmission Date: 20160304
  Serious: Yes (Hospitalization)
  Sender: FDA-Public Use
  Company Number: CA-JNJFOC-20151007373

PATIENT
  Age: 40 Year
  Sex: Female
  Weight: 58.1 kg

DRUGS (2)
  1. IMURAN [Concomitant]
     Active Substance: AZATHIOPRINE
     Indication: PRODUCT USED FOR UNKNOWN INDICATION
     Route: 048
  2. REMICADE [Suspect]
     Active Substance: INFLIXIMAB
     Indication: CROHN^S DISEASE
     Route: 042
     Dates: start: 20141222

REACTIONS (8)
  - Pyrexia [Unknown]
  - Abdominal abscess [Unknown]
  - Vomiting [Unknown]
  - Pain [Unknown]
  - Haemorrhage [Unknown]
  - Dizziness [Unknown]
  - Cyst [Unknown]
  - Intestinal stenosis [Not Recovered/Not Resolved]

NARRATIVE: CASE EVENT DATE: 2015
